FAERS Safety Report 16945063 (Version 3)
Quarter: 2019Q4

REPORT INFORMATION
  Report Type: Report from Study
  Country: ES (occurrence: ES)
  Receive Date: 20191022
  Receipt Date: 20191118
  Transmission Date: 20200122
  Serious: Yes (Hospitalization)
  Sender: FDA-Public Use
  Company Number: ES-TAKEDA-2019TUS058543

PATIENT
  Sex: Female
  Weight: 61.8 kg

DRUGS (16)
  1. DEXAMETHASONE. [Suspect]
     Active Substance: DEXAMETHASONE
     Indication: PLASMA CELL MYELOMA
     Dosage: 20 MILLIGRAM
     Route: 048
     Dates: start: 20190617, end: 20191020
  2. ACICLOVIR NORMON [Concomitant]
     Dosage: 800 MILLIGRAM, QD
     Route: 048
  3. ABSTRAL [Concomitant]
     Active Substance: FENTANYL CITRATE
     Dosage: 100 MICROGRAM, Q8HR
     Route: 048
  4. MOTIVAN                            /00019501/ [Concomitant]
     Dosage: 20 MILLIGRAM, QD
     Route: 048
  5. PREGABALIN. [Concomitant]
     Active Substance: PREGABALIN
     Dosage: 75 MILLIGRAM, Q12H
     Route: 048
  6. OMEPRAZOLE. [Concomitant]
     Active Substance: OMEPRAZOLE
     Dosage: 40 MILLIGRAM, QD
  7. BUDESONIDE. [Concomitant]
     Active Substance: BUDESONIDE
     Dosage: 200 MICROGRAM
  8. DEPAKENE [Concomitant]
     Active Substance: VALPROIC ACID
     Dosage: 500 MILLIGRAM, Q12H
     Route: 048
  9. ASA [Concomitant]
     Active Substance: ASPIRIN
     Dosage: 100 MILLIGRAM, QD
     Route: 048
  10. FUROSEMIDE. [Concomitant]
     Active Substance: FUROSEMIDE
     Indication: PERIPHERAL VENOUS DISEASE
     Dosage: 40 MILLIGRAM, QD
     Route: 048
  11. ACTIQ [Concomitant]
     Active Substance: FENTANYL CITRATE
     Indication: BACK PAIN
     Dosage: 100 MICROGRAM
  12. OMEPRAZOLE. [Concomitant]
     Active Substance: OMEPRAZOLE
     Indication: PROPHYLAXIS
     Dosage: 20 MILLIGRAM, QD
  13. IXAZOMIB [Suspect]
     Active Substance: IXAZOMIB
     Indication: PLASMA CELL MYELOMA
     Dosage: 4 MILLIGRAM, 1/WEEK
     Route: 048
     Dates: start: 20190617, end: 20191020
  14. ATROALDO [Concomitant]
     Indication: BRONCHIAL HYPERREACTIVITY
     Dosage: 20 MICROGRAM, Q6HR
  15. FENDIVIA [Concomitant]
     Active Substance: FENTANYL
     Indication: BACK PAIN
     Dosage: UNK UNK, Q72H
  16. PREGABALIN. [Concomitant]
     Active Substance: PREGABALIN
     Indication: INTERVERTEBRAL DISC DISORDER
     Dosage: 150 MILLIGRAM, Q12H

REACTIONS (1)
  - Bronchitis [Recovered/Resolved]

NARRATIVE: CASE EVENT DATE: 20191010
